FAERS Safety Report 5480132-X (Version None)
Quarter: 2007Q4

REPORT INFORMATION
  Report Type: 
  Country: None (occurrence: None)
  Receive Date: 20071009
  Receipt Date: 20071003
  Transmission Date: 20080405
  Serious: Yes (Death)
  Sender: FDA-Public Use
  Company Number: PHHO2007BR16340

PATIENT
  Age: 84 Year
  Sex: Male

DRUGS (4)
  1. FORASEQ [Suspect]
     Indication: RESPIRATORY FAILURE
     Dosage: BID
     Dates: start: 20051001
  2. CAPTOPRIL [Concomitant]
  3. FUROSEMIDE [Concomitant]
     Indication: HYPERTENSION
  4. AAS [Concomitant]

REACTIONS (2)
  - BLOOD PRESSURE DECREASED [None]
  - RESPIRATORY FAILURE [None]
